FAERS Safety Report 4639255-7 (Version None)
Quarter: 2005Q2

REPORT INFORMATION
  Report Type: 
  Country: None (occurrence: None)
  Receive Date: 20050418
  Receipt Date: 20050329
  Transmission Date: 20051028
  Serious: Yes (Hospitalization)
  Sender: FDA-Public Use
  Company Number: 2005USFACT00448

PATIENT
  Age: 74 Year
  Sex: Male

DRUGS (4)
  1. FACTIVE [Suspect]
     Indication: RESPIRATORY TRACT INFECTION BACTERIAL
     Dates: start: 20050322, end: 20050324
  2. COUMADIN [Suspect]
     Indication: ATRIAL FIBRILLATION
     Dosage: 5.00 MG, QD, ORAL
     Route: 048
  3. AMBIEN [Concomitant]
  4. ZANTAC [Concomitant]

REACTIONS (6)
  - BRONCHITIS [None]
  - CHEST PAIN [None]
  - DIZZINESS [None]
  - DRUG TOXICITY [None]
  - DYSPNOEA [None]
  - INTERNATIONAL NORMALISED RATIO INCREASED [None]
